FAERS Safety Report 4551703-X (Version None)
Quarter: 2005Q1

REPORT INFORMATION
  Report Type: 
  Country: None (occurrence: None)
  Receive Date: 20050112
  Receipt Date: 20041228
  Transmission Date: 20050727
  Serious: Yes (Death, Other)
  Sender: FDA-Public Use
  Company Number: 200416258BCC

PATIENT
  Age: 75 Year
  Sex: Male

DRUGS (3)
  1. ALEVE [Suspect]
     Indication: ARTHRALGIA
     Dosage: IRR
  2. GLIPIZIDE [Concomitant]
  3. ARICEPT [Concomitant]

REACTIONS (1)
  - CEREBROVASCULAR ACCIDENT [None]
